FAERS Safety Report 6764151-9 (Version None)
Quarter: 2010Q2

REPORT INFORMATION
  Report Type: 
  Country: None (occurrence: None)
  Receive Date: 20100610
  Receipt Date: 20100601
  Transmission Date: 20101027
  Serious: Yes (Hospitalization)
  Sender: FDA-Public Use
  Company Number: A0862246A

PATIENT
  Age: 62 Year
  Sex: Female

DRUGS (11)
  1. COREG [Suspect]
     Indication: HYPERTENSION
     Dosage: 12.5MG TWICE PER DAY
     Route: 048
     Dates: start: 20090501
  2. ZANTAC [Concomitant]
  3. LISINOPRIL [Concomitant]
  4. LIPITOR [Concomitant]
  5. FUROSEMIDE [Concomitant]
  6. ASPIRIN [Concomitant]
  7. PLAVIX [Concomitant]
  8. PERPHENAZINE AND AMITRIPTYLINE HCL [Concomitant]
  9. TRAMADOL [Concomitant]
  10. POTASSIUM CHLORIDE [Concomitant]
  11. INSULIN [Concomitant]

REACTIONS (2)
  - CARDIAC DISORDER [None]
  - STENT PLACEMENT [None]
